FAERS Safety Report 15363395 (Version 6)
Quarter: 2018Q4

REPORT INFORMATION
  Report Type: Report from Study
  Country: US (occurrence: US)
  Receive Date: 20180907
  Receipt Date: 20181207
  Transmission Date: 20190204
  Serious: Yes (Death, Hospitalization)
  Sender: FDA-Public Use
  Company Number: US-ACTELION-A-NJ2018-176617

PATIENT
  Age: 75 Year
  Sex: Female

DRUGS (5)
  1. ELIQUIS [Concomitant]
     Active Substance: APIXABAN
  2. DILTIAZEM. [Concomitant]
     Active Substance: DILTIAZEM
  3. PROBIOTICS NOS [Concomitant]
     Active Substance: PROBIOTICS NOS
  4. OPSUMIT [Suspect]
     Active Substance: MACITENTAN
     Indication: PULMONARY ARTERIAL HYPERTENSION
     Dosage: 10 MG, QD
     Route: 048
     Dates: start: 20160719, end: 20181112
  5. LEVAQUIN [Concomitant]
     Active Substance: LEVOFLOXACIN

REACTIONS (7)
  - Pulmonary hypertension [Unknown]
  - Pyrexia [Unknown]
  - Gait inability [Unknown]
  - Disease progression [Unknown]
  - Death [Fatal]
  - Diarrhoea [Unknown]
  - Malaise [Unknown]

NARRATIVE: CASE EVENT DATE: 201710
